FAERS Safety Report 6571854-8 (Version None)
Quarter: 2010Q1

REPORT INFORMATION
  Report Type: 
  Country: None (occurrence: None)
  Receive Date: 20100205
  Receipt Date: 20100202
  Transmission Date: 20100710
  Serious: Yes (Hospitalization, Other)
  Sender: FDA-Public Use
  Company Number: FR-ROXANE LABORATORIES, INC.-2010-RO-00119RO

PATIENT
  Age: 20 Month
  Sex: Female

DRUGS (15)
  1. MYCOPHENOLATE MOFETIL [Suspect]
     Indication: IMMUNOSUPPRESSION
  2. MYCOPHENOLATE MOFETIL [Suspect]
  3. MYCOPHENOLATE MOFETIL [Suspect]
  4. PREDNISONE [Suspect]
     Indication: IMMUNOSUPPRESSION
  5. PREDNISONE [Suspect]
     Dosage: 8 MG
  6. PREDNISONE [Suspect]
     Dosage: 10 MG
  7. BASILIXIMAB [Suspect]
     Dosage: 10 MG
  8. CYCLOSPORINE [Suspect]
     Indication: IMMUNOSUPPRESSION
  9. METHYLPREDNISOLONE [Suspect]
     Indication: TRANSPLANT REJECTION
  10. COTRIMOXAZOLE [Suspect]
     Indication: ANTIFUNGAL PROPHYLAXIS
  11. AMPHOTERICIN B [Suspect]
     Indication: ANTIFUNGAL PROPHYLAXIS
     Route: 048
  12. PENTAMIDINE [Suspect]
     Indication: PYREXIA
     Route: 055
  13. WHOLE BLOOD [Concomitant]
     Indication: ANAEMIA
  14. WHOLE BLOOD [Concomitant]
     Indication: LEUKOPENIA
  15. WHOLE BLOOD [Concomitant]
     Indication: BLOOD LACTATE DEHYDROGENASE INCREASED

REACTIONS (11)
  - ABNORMAL LOSS OF WEIGHT [None]
  - ANAEMIA [None]
  - BLADDER DISORDER [None]
  - BLOOD CREATININE INCREASED [None]
  - BLOOD LACTATE DEHYDROGENASE INCREASED [None]
  - DIARRHOEA [None]
  - FEEDING DISORDER [None]
  - HUMAN HERPESVIRUS 6 INFECTION [None]
  - LEUKOPENIA [None]
  - PYREXIA [None]
  - TRANSPLANT REJECTION [None]
